FAERS Safety Report 6929877-2 (Version None)
Quarter: 2010Q3

REPORT INFORMATION
  Report Type: 
  Country: None (occurrence: None)
  Receive Date: 20100817
  Receipt Date: 20100817
  Transmission Date: 20110219
  Serious: No
  Sender: FDA-Public Use
  Company Number: None

PATIENT
  Sex: Female
  Weight: 81.6475 kg

DRUGS (1)
  1. ACTOS [Suspect]
     Indication: TYPE 2 DIABETES MELLITUS
     Dosage: 30 MG 1 X D 1X DAY BY MOUTH
     Route: 048
     Dates: start: 19980101, end: 20100101

REACTIONS (3)
  - EAR DISORDER [None]
  - EYE DISORDER [None]
  - SINUSITIS [None]
